FAERS Safety Report 11191288 (Version 1)
Quarter: 2015Q2

REPORT INFORMATION
  Report Type: Spontaneous
  Country: CA (occurrence: CA)
  Receive Date: 20150616
  Receipt Date: 20150616
  Transmission Date: 20150821
  Serious: Yes (Hospitalization)
  Sender: FDA-Public Use
  Company Number: CA-MERCK-1505CAN014551

PATIENT
  Age: 82 Year
  Sex: Male

DRUGS (1)
  1. ZOLINZA [Suspect]
     Active Substance: VORINOSTAT
     Indication: DIFFUSE LARGE B-CELL LYMPHOMA
     Dosage: 400 MG, QD (STRENGTH REPORTED AS 2327619, FREQUENCY: OD X 30 DS)
     Route: 048
     Dates: start: 20150508

REACTIONS (2)
  - Asthenia [Unknown]
  - Adverse event [Unknown]

NARRATIVE: CASE EVENT DATE: 2015
